FAERS Safety Report 4692018-9 (Version None)
Quarter: 2005Q2

REPORT INFORMATION
  Report Type: 
  Country: None (occurrence: None)
  Receive Date: 20050616
  Receipt Date: 20050616
  Transmission Date: 20051028
  Serious: Yes (Hospitalization)
  Sender: FDA-Public Use
  Company Number: None

PATIENT
  Sex: Female
  Weight: 65.7716 kg

DRUGS (2)
  1. PROPRANOLOL [Suspect]
     Indication: ARTERIAL RUPTURE
     Dosage: 10MG   1X   ORAL
     Route: 048
     Dates: start: 20030623, end: 20050406
  2. PLAVIX [Concomitant]

REACTIONS (3)
  - CHEST PAIN [None]
  - DRUG WITHDRAWAL SYNDROME [None]
  - MUSCLE SPASMS [None]
